FAERS Safety Report 4473701-7 (Version None)
Quarter: 2004Q4

REPORT INFORMATION
  Report Type: 
  Country: None (occurrence: None)
  Receive Date: 20041013
  Receipt Date: 20041011
  Transmission Date: 20050328
  Serious: Yes (Hospitalization)
  Sender: FDA-Public Use
  Company Number: AU-MERCK-0410AUS00122

PATIENT
  Sex: Female

DRUGS (2)
  1. MYLANTA + MYLANTA DS [Concomitant]
     Route: 065
     Dates: start: 20040901
  2. VIOXX [Suspect]
     Indication: PAIN
     Route: 065
     Dates: start: 20040901, end: 20040901

REACTIONS (3)
  - DIZZINESS [None]
  - DYSPNOEA [None]
  - FEELING ABNORMAL [None]
